FAERS Safety Report 5303026-9 (Version None)
Quarter: 2007Q2

REPORT INFORMATION
  Report Type: 
  Country: None (occurrence: None)
  Receive Date: 20070413
  Receipt Date: 20070403
  Transmission Date: 20071010
  Serious: Yes (Hospitalization)
  Sender: FDA-Public Use
  Company Number: GXKR2007US03160

PATIENT
  Sex: Male

DRUGS (1)
  1. PROMETHAZINE HCL [Suspect]
     Indication: NAUSEA
     Dosage: 12.5 MG, ONCE/SINGLE; INTRAVENOUS
     Route: 042
     Dates: start: 20060101

REACTIONS (2)
  - INJECTION SITE PAIN [None]
  - VENOUS THROMBOSIS [None]
